FAERS Safety Report 7906855-8 (Version None)
Quarter: 2011Q4

REPORT INFORMATION
  Report Type: 
  Country: None (occurrence: None)
  Receive Date: 20111110
  Receipt Date: 20111104
  Transmission Date: 20120403
  Serious: Yes (Disabling, Other)
  Sender: FDA-Public Use
  Company Number: GB-PFIZER INC-2011244912

PATIENT
  Age: 23 Year
  Sex: Female
  Weight: 67.5 kg

DRUGS (11)
  1. LORAZEPAM [Concomitant]
     Dosage: UNK
     Dates: start: 20110812, end: 20110826
  2. CHLORDIAZEPOXIDE [Concomitant]
     Dosage: UNK
     Dates: start: 20110927
  3. ERYTHROMYCIN ETHYLSUCCINATE [Concomitant]
     Dosage: UNK
     Dates: start: 20110909, end: 20110914
  4. ONDANSETRON HYDROCHLORIDE [Suspect]
  5. CEFALEXIN [Concomitant]
     Dosage: UNK
     Dates: start: 20110829, end: 20110905
  6. GAVISCON [Concomitant]
     Dosage: UNK
     Dates: start: 20110812, end: 20110909
  7. CLOMIPRAMINE [Concomitant]
     Dosage: UNK
     Dates: start: 20110613, end: 20110909
  8. METOCLOPRAMIDE [Concomitant]
     Dosage: UNK
     Dates: start: 20110914
  9. IMPLANON [Concomitant]
  10. PROCHLORPERAZINE [Concomitant]
     Dosage: UNK
     Dates: start: 20110829, end: 20110910
  11. CYCLIZINE [Concomitant]
     Dosage: UNK
     Dates: start: 20110812

REACTIONS (1)
  - MORBID THOUGHTS [None]
